FAERS Safety Report 23073739 (Version 1)
Quarter: 2023Q4

REPORT INFORMATION
  Report Type: Other
  Country: DE (occurrence: DE)
  Receive Date: 20231017
  Receipt Date: 20231017
  Transmission Date: 20240109
  Serious: Yes (Other)
  Sender: FDA-Public Use
  Company Number: None

PATIENT

DRUGS (2)
  1. EZETIMIBE [Suspect]
     Active Substance: EZETIMIBE
     Indication: Hypercholesterolaemia
     Dosage: 10 MILLIGRAM, QD
     Route: 048
     Dates: start: 202301
  2. BEMPEDOIC ACID\EZETIMIBE [Suspect]
     Active Substance: BEMPEDOIC ACID\EZETIMIBE
     Indication: Hypercholesterolaemia
     Dosage: 1 DOSAGE FORM, QD (180 MG /10 MG)
     Route: 048
     Dates: start: 202305

REACTIONS (1)
  - Neuropathy peripheral [Recovered/Resolved]
